FAERS Safety Report 23839029 (Version 1)
Quarter: 2024Q2

REPORT INFORMATION
  Report Type: Spontaneous
  Country: LU (occurrence: LU)
  Receive Date: 20240509
  Receipt Date: 20240509
  Transmission Date: 20240716
  Serious: Yes (Other)
  Sender: FDA-Public Use
  Company Number: None

PATIENT
  Age: 60 Year
  Sex: Female
  Weight: 73 kg

DRUGS (4)
  1. CISPLATIN [Suspect]
     Active Substance: CISPLATIN
     Indication: Ovarian cancer
     Dosage: TIME INTERVAL: CYCLICAL: 3RD COURSE OF CHEMOTHERAPY; CISPLATIN TEVA
     Route: 042
     Dates: start: 20240328, end: 20240328
  2. SOLU-MEDROL [Concomitant]
     Active Substance: METHYLPREDNISOLONE SODIUM SUCCINATE
     Indication: Chemotherapy side effect prophylaxis
     Dosage: TIME INTERVAL: TOTAL: 3RD COURSE OF CHEMOTHERAPY
     Route: 042
     Dates: start: 20240328, end: 20240328
  3. CLEMASTINE FUMARATE [Concomitant]
     Active Substance: CLEMASTINE FUMARATE
     Indication: Chemotherapy side effect prophylaxis
     Dosage: TIME INTERVAL: TOTAL: 3RD COURSE OF CHEMOTHERAPY
     Route: 042
     Dates: start: 20240328, end: 20240328
  4. AKYNZEO [Concomitant]
     Indication: Chemotherapy side effect prophylaxis
     Dosage: TIME INTERVAL: TOTAL: NETUPITANT 300 MG/ PALONOSETRON 0.5 MG?3RD COURSE OF CHEMOTHERAPY; AKYNZEO ...
     Route: 048
     Dates: start: 20240328, end: 20240328

REACTIONS (1)
  - Infusion related reaction [Recovered/Resolved]

NARRATIVE: CASE EVENT DATE: 20240328
